FAERS Safety Report 9298988 (Version 1)
Quarter: 2013Q2

REPORT INFORMATION
  Report Type: Spontaneous
  Country: US (occurrence: US)
  Receive Date: 20130520
  Receipt Date: 20130520
  Transmission Date: 20140414
  Serious: No
  Sender: FDA-Public Use
  Company Number: US-SANOFI-AVENTIS-2013SA029920

PATIENT
  Sex: Female

DRUGS (2)
  1. APIDRA [Suspect]
     Indication: TYPE 2 DIABETES MELLITUS
     Dosage: 2 UNITS AM / 4 UNITS LUNCH
     Route: 058
     Dates: start: 20130314
  2. DILAUDID [Suspect]

REACTIONS (2)
  - Blood glucose increased [Unknown]
  - Vomiting [Unknown]
